FAERS Safety Report 10361249 (Version 4)
Quarter: 2015Q2

REPORT INFORMATION
  Report Type: Report from Study
  Country: BR (occurrence: BR)
  Receive Date: 20140804
  Receipt Date: 20150618
  Transmission Date: 20150821
  Serious: Yes (Other)
  Sender: FDA-Public Use
  Company Number: BR-ABBVIE-13P-020-1052052-00

PATIENT
  Age: 61 Year
  Sex: Female
  Weight: 105 kg

DRUGS (14)
  1. OMEGA 3 [Concomitant]
     Active Substance: OMEGA-3 FATTY ACIDS
     Indication: EYE DISORDER
     Route: 048
     Dates: start: 20140301
  2. ALPROZOLAM [Concomitant]
     Active Substance: ALPRAZOLAM
     Indication: HYPERTENSION
     Route: 048
     Dates: start: 20130130
  3. PARACETAMOL [Concomitant]
     Active Substance: ACETAMINOPHEN
     Route: 048
     Dates: start: 20130213
  4. LOSARTAN POTASSIUM. [Concomitant]
     Active Substance: LOSARTAN POTASSIUM
     Indication: HYPERTENSION
     Route: 048
     Dates: start: 201408
  5. CLONAZEPAM. [Concomitant]
     Active Substance: CLONAZEPAM
     Indication: SEDATIVE THERAPY
     Route: 048
     Dates: start: 20090101
  6. ALTROX [Concomitant]
     Indication: SLEEP DISORDER THERAPY
     Route: 048
     Dates: end: 201408
  7. HUMIRA [Suspect]
     Active Substance: ADALIMUMAB
     Route: 058
     Dates: start: 201302
  8. CAPTOPRIL. [Concomitant]
     Active Substance: CAPTOPRIL
     Indication: HYPERTENSION
     Route: 048
     Dates: end: 201302
  9. HYDROCHLOROTHIAZIDE. [Concomitant]
     Active Substance: HYDROCHLOROTHIAZIDE
     Indication: FLUID RETENTION
     Route: 048
     Dates: end: 201408
  10. HUMIRA [Suspect]
     Active Substance: ADALIMUMAB
     Indication: PSORIATIC ARTHROPATHY
     Route: 058
     Dates: start: 20110101, end: 20121010
  11. PARACETAMOL [Concomitant]
     Active Substance: ACETAMINOPHEN
     Indication: BONE PAIN
     Route: 048
     Dates: start: 20130130, end: 20130212
  12. CYCLOBENZAPRINE [Concomitant]
     Active Substance: CYCLOBENZAPRINE
     Indication: SLEEP DISORDER THERAPY
     Route: 048
     Dates: start: 20140622
  13. CLONAZEPAM. [Concomitant]
     Active Substance: CLONAZEPAM
     Indication: SLEEP DISORDER THERAPY
     Route: 048
     Dates: start: 201408
  14. BETACAROTINE+ZINC OXID+LUTEIN+ZEACETINA [Concomitant]
     Indication: EYE DISORDER
     Dosage: 15 MG/80 MG/10 MG/2 MG
     Route: 048
     Dates: start: 20140301

REACTIONS (16)
  - Eye irritation [Unknown]
  - Eye irritation [Not Recovered/Not Resolved]
  - Macular hole [Recovering/Resolving]
  - Skin depigmentation [Recovered/Resolved]
  - Eye pain [Unknown]
  - Psoriasis [Unknown]
  - Tendonitis [Unknown]
  - Arthralgia [Not Recovered/Not Resolved]
  - Rheumatic disorder [Unknown]
  - Tendon pain [Recovering/Resolving]
  - Eye allergy [Unknown]
  - Hypoaesthesia [Unknown]
  - Musculoskeletal pain [Not Recovered/Not Resolved]
  - Pain [Unknown]
  - Eye inflammation [Unknown]
  - Eye pruritus [Unknown]

NARRATIVE: CASE EVENT DATE: 201210
